FAERS Safety Report 14471886 (Version 1)
Quarter: 2018Q1

REPORT INFORMATION
  Report Type: Spontaneous
  Country: US (occurrence: US)
  Receive Date: 20180131
  Receipt Date: 20180131
  Transmission Date: 20180509
  Serious: Yes (Death, Hospitalization, Other)
  Sender: FDA-Public Use
  Company Number: US-MYLANLABS-2018M1006290

PATIENT
  Age: 25 Year
  Sex: Female

DRUGS (1)
  1. SULPHAMETHOXAZOLE/TRIMETHOPRIM [Suspect]
     Active Substance: SULFAMETHOXAZOLE\TRIMETHOPRIM
     Indication: SOFT TISSUE INJURY
     Dosage: UNK
     Route: 065

REACTIONS (6)
  - Hepatitis acute [Fatal]
  - Acute kidney injury [Not Recovered/Not Resolved]
  - Hepatic necrosis [Fatal]
  - Acute hepatic failure [Fatal]
  - Haemodynamic instability [Fatal]
  - Haemorrhage [Fatal]
